FAERS Safety Report 24932504 (Version 1)
Quarter: 2025Q1

REPORT INFORMATION
  Report Type: Report from Study
  Country: US (occurrence: US)
  Receive Date: 20250205
  Receipt Date: 20250205
  Transmission Date: 20250409
  Serious: No
  Sender: EXELIXIS
  Company Number: US-EXELIXIS-CABO-24080991

PATIENT
  Sex: Female

DRUGS (7)
  1. CABOMETYX [Suspect]
     Active Substance: CABOZANTINIB S-MALATE
     Indication: Hepatocellular carcinoma
     Dosage: 40 MG, QD
     Route: 048
     Dates: start: 20240624
  2. ASPIRIN [Concomitant]
     Active Substance: ASPIRIN
  3. IMODIUM A-D [Concomitant]
     Active Substance: LOPERAMIDE HYDROCHLORIDE
  4. LENVIMA [Concomitant]
     Active Substance: LENVATINIB
  5. LISINOPRIL [Concomitant]
     Active Substance: LISINOPRIL
  6. TACROLIMUS [Concomitant]
     Active Substance: TACROLIMUS
  7. URSODIOL [Concomitant]
     Active Substance: URSODIOL

REACTIONS (4)
  - Insomnia [Unknown]
  - Diarrhoea [Unknown]
  - Decreased appetite [Unknown]
  - Fatigue [Unknown]
